FAERS Safety Report 7166727-6 (Version None)
Quarter: 2010Q4

REPORT INFORMATION
  Report Type: 
  Country: None (occurrence: None)
  Receive Date: 20101213
  Receipt Date: 20101213
  Transmission Date: 20110411
  Serious: Yes (Other)
  Sender: FDA-Public Use
  Company Number: None

PATIENT
  Age: 58 Year
  Sex: Female
  Weight: 113.3993 kg

DRUGS (2)
  1. METFORMIN HCL [Suspect]
     Indication: TYPE 2 DIABETES MELLITUS
     Dosage: 500MG TWICE A DAY PO
     Route: 048
     Dates: start: 20100406, end: 20101210
  2. METFORMIN HCL [Suspect]
     Indication: TYPE 2 DIABETES MELLITUS
     Dosage: 1000MG DAILY PO
     Route: 048
     Dates: start: 20100225, end: 20101210

REACTIONS (2)
  - DYSPNOEA [None]
  - HEART RATE IRREGULAR [None]
